FAERS Safety Report 21441470 (Version 1)
Quarter: 2022Q4

REPORT INFORMATION
  Report Type: Spontaneous
  Country: PT (occurrence: FR)
  Receive Date: 20221011
  Receipt Date: 20221011
  Transmission Date: 20230113
  Serious: Yes (Other)
  Sender: FDA-Public Use
  Company Number: None

PATIENT

DRUGS (3)
  1. ESLICARBAZEPINE ACETATE [Suspect]
     Active Substance: ESLICARBAZEPINE ACETATE
     Indication: Epilepsy
     Dosage: 800 MILLIGRAM, 1X / DAY
     Route: 048
     Dates: start: 202006
  2. VIMPAT [Suspect]
     Active Substance: LACOSAMIDE
     Indication: Epilepsy
     Dosage: 400 MILLIGRAM, 1X / DAY
     Route: 048
     Dates: start: 2018
  3. VIMPAT [Suspect]
     Active Substance: LACOSAMIDE
     Dosage: DECREASED DOSE (UNSPECIFIED)
     Route: 065

REACTIONS (2)
  - Aggression [Recovering/Resolving]
  - Libido decreased [Recovering/Resolving]

NARRATIVE: CASE EVENT DATE: 20201201
